FAERS Safety Report 6308385-6 (Version None)
Quarter: 2009Q3

REPORT INFORMATION
  Report Type: 
  Country: None (occurrence: None)
  Receive Date: 20090813
  Receipt Date: 20090803
  Transmission Date: 20100115
  Serious: Yes (Other)
  Sender: FDA-Public Use
  Company Number: US-ELI_LILLY_AND_COMPANY-US200906007020

PATIENT
  Sex: Female
  Weight: 91.61 kg

DRUGS (12)
  1. BYETTA [Suspect]
     Indication: TYPE 2 DIABETES MELLITUS
     Dosage: 5 UG, 2/D
     Route: 058
     Dates: start: 20060101
  2. BYETTA [Suspect]
     Dosage: 10 UG, 2/D
     Route: 058
  3. METFORMIN HCL [Concomitant]
     Indication: TYPE 2 DIABETES MELLITUS
     Dosage: UNK, UNKNOWN
  4. GLIMEPIRIDE [Concomitant]
     Dosage: UNK, UNKNOWN
  5. LISINOPRIL [Concomitant]
     Indication: HYPERTENSION
     Dosage: 20 MG, 2/D
     Route: 048
     Dates: end: 20090628
  6. LISINOPRIL [Concomitant]
     Dosage: UNK, UNKNOWN
  7. ATENOLOL [Concomitant]
     Indication: HYPERTENSION
     Dosage: 50 MG, 2/D
     Route: 048
  8. HYDROCHLOROTHIAZIDE [Concomitant]
     Indication: HYPERTENSION
     Dosage: 12.5 MG, 2/D
     Route: 048
  9. LORAZEPAM [Concomitant]
     Indication: ANXIETY
     Dosage: 1 MG, 3/D
     Route: 048
  10. LIPITOR [Concomitant]
     Indication: HYPERLIPIDAEMIA
     Dosage: 40 MG, EACH EVENING
     Route: 048
  11. TRICOR [Concomitant]
     Indication: HYPERTRIGLYCERIDAEMIA
     Dosage: 145 MG, EACH EVENING
     Route: 048
  12. ADVIL LIQUI-GELS [Concomitant]
     Indication: PAIN
     Dosage: UNK, UNKNOWN

REACTIONS (3)
  - ANGIOEDEMA [None]
  - BLOOD GLUCOSE INCREASED [None]
  - PAIN [None]
